FAERS Safety Report 11794574 (Version 3)
Quarter: 2015Q4

REPORT INFORMATION
  Report Type: Spontaneous
  Country: CA (occurrence: CA)
  Receive Date: 20151202
  Receipt Date: 20151222
  Transmission Date: 20160305
  Serious: Yes (Hospitalization)
  Sender: FDA-Public Use
  Company Number: CA-UNITED THERAPEUTICS-UNT-2015-012328

PATIENT
  Age: 11 Year
  Sex: Female

DRUGS (1)
  1. REMODULIN [Suspect]
     Active Substance: TREPROSTINIL
     Indication: PULMONARY ARTERIAL HYPERTENSION
     Dosage: UNK UNK, CONTINUING
     Route: 058
     Dates: start: 20150929

REACTIONS (15)
  - Tachycardia [Unknown]
  - Infusion site irritation [Not Recovered/Not Resolved]
  - Abdominal pain [Unknown]
  - Chest pain [Unknown]
  - Paraesthesia [Unknown]
  - Haematochezia [Unknown]
  - White blood cell count increased [Unknown]
  - Infusion site pain [Not Recovered/Not Resolved]
  - Diarrhoea [Not Recovered/Not Resolved]
  - Infusion site haemorrhage [Recovered/Resolved]
  - Headache [Recovered/Resolved]
  - Infusion site erythema [Not Recovered/Not Resolved]
  - Infusion site oedema [Not Recovered/Not Resolved]
  - Nasopharyngitis [Recovering/Resolving]
  - Pain [Unknown]

NARRATIVE: CASE EVENT DATE: 2015
